FAERS Safety Report 7125784-3 (Version None)
Quarter: 2010Q4

REPORT INFORMATION
  Report Type: 
  Country: None (occurrence: None)
  Receive Date: 20101129
  Receipt Date: 20101013
  Transmission Date: 20110411
  Serious: Yes (Other)
  Sender: FDA-Public Use
  Company Number: B0685900A

PATIENT
  Sex: Male

DRUGS (1)
  1. NEOTIGASON [Suspect]
     Indication: PUSTULAR PSORIASIS
     Dosage: 10MG PER DAY
     Dates: start: 20101004, end: 20101023

REACTIONS (3)
  - GAIT DISTURBANCE [None]
  - LOCALISED INFECTION [None]
  - SKIN EXFOLIATION [None]
